FAERS Safety Report 9974898 (Version 1)
Quarter: 2014Q1

REPORT INFORMATION
  Report Type: Spontaneous
  Country: US (occurrence: US)
  Receive Date: 20140306
  Receipt Date: 20140306
  Transmission Date: 20141002
  Serious: No
  Sender: FDA-Public Use
  Company Number: US-ABBVIE-13P-163-1157728-00

PATIENT
  Age: 41 Year
  Sex: Female
  Weight: 98.52 kg

DRUGS (3)
  1. HUMIRA [Suspect]
     Indication: RHEUMATOID ARTHRITIS
     Route: 058
     Dates: start: 201305
  2. ULTIMATE GREENS [Concomitant]
     Indication: VITAMIN SUPPLEMENTATION
  3. BIOFLEX [Concomitant]
     Indication: VITAMIN SUPPLEMENTATION

REACTIONS (5)
  - Pain [Not Recovered/Not Resolved]
  - Rash [Not Recovered/Not Resolved]
  - Pruritus [Not Recovered/Not Resolved]
  - Blister [Not Recovered/Not Resolved]
  - Scar [Not Recovered/Not Resolved]
